FAERS Safety Report 8804451 (Version 1)
Quarter: 2012Q4

REPORT INFORMATION
  Report Type: 
  Country: US (occurrence: US)
  Receive Date: 20120924
  Receipt Date: 20120924
  Transmission Date: 20130627
  Serious: Yes (Hospitalization)
  Sender: FDA-Public Use
  Company Number: US-BAYER-2012-097511

PATIENT
  Age: 41 Year
  Sex: Female
  Weight: 65.76 kg

DRUGS (23)
  1. YASMIN [Suspect]
     Indication: CONTRACEPTION
     Dosage: UNK
     Dates: start: 20070729
  2. YASMIN [Suspect]
     Indication: CONTRACEPTION
     Dosage: UNK
     Dates: start: 20080114, end: 20110301
  3. YASMIN [Suspect]
     Indication: CONTRACEPTION
  4. OCELLA [Suspect]
     Indication: CONTRACEPTION
     Dosage: UNK
     Dates: start: 20070729
  5. OCELLA [Suspect]
     Indication: CONTRACEPTION
     Dosage: UNK
     Dates: start: 20080114, end: 20110301
  6. ANTIHISTAMINES [Concomitant]
     Dosage: UNK
     Dates: start: 20101108
  7. PHENERGAN [Concomitant]
     Dosage: 25 mg, 1/2 tablet once a day
     Dates: start: 20101108
  8. IBUPROFEN [Concomitant]
     Indication: HEADACHE
     Dosage: 2 to 4 daily as needed
  9. LEXAPRO [Concomitant]
     Indication: MENIERE^S DISEASE
     Dosage: daily
     Dates: start: 20101108
  10. DIPHENIDOL [Concomitant]
     Dosage: 25 Gm
     Dates: start: 20101108
  11. XYZAL [Concomitant]
     Indication: MENIERE^S DISEASE
     Dosage: 5 mg, DAILY
     Dates: start: 20101108
  12. XYZAL [Concomitant]
     Indication: RHINITIS ALLERGIC
  13. SINGULAIR [Concomitant]
     Indication: MENIERE^S DISEASE
     Dosage: 10 mg, DAILY
     Dates: start: 20101108
  14. SINGULAIR [Concomitant]
     Indication: RHINITIS ALLERGIC
  15. SYNTHROID [Concomitant]
     Indication: HYPOTHYROIDISM
     Dosage: 50 ?g, DAILY
     Dates: start: 20101108
  16. MAXZIDE [Concomitant]
     Indication: MENIERE^S DISEASE
     Dosage: 37.5-25 mg
     Dates: start: 20101108
  17. NORCO [Concomitant]
     Indication: PNEUMONIA
     Dosage: 5 mg/325 mg
     Dates: start: 20110228
  18. ALDACTONE [SPIRONOLACTONE] [Concomitant]
     Indication: MENIERE^S DISEASE
     Dosage: 25 mg, 2 tablets Daily
     Dates: start: 20110126
  19. PREDNISONE [Concomitant]
     Dosage: 20 mg, UNK
     Dates: start: 20110126
  20. FLEXERIL [Concomitant]
     Dosage: 10 mg, UNK
     Dates: start: 20110228
  21. Z-PAK [Concomitant]
     Indication: PNEUMONIA
     Dosage: 250 mg, UNK
     Dates: start: 20110206
  22. FLUTICASONE [Concomitant]
     Dosage: 2 sprays in each nostril every day
     Route: 045
     Dates: start: 20110206
  23. ALLERGY SHOTS [Concomitant]
     Dosage: WEEKLY
     Dates: start: 20110301

REACTIONS (7)
  - Pulmonary embolism [None]
  - Deep vein thrombosis [None]
  - Lung disorder [None]
  - Pulmonary infarction [None]
  - Chest pain [None]
  - Pain in extremity [None]
  - Oedema peripheral [None]
